FAERS Safety Report 25979743 (Version 3)
Quarter: 2025Q4

REPORT INFORMATION
  Report Type: Spontaneous
  Country: JP (occurrence: JP)
  Receive Date: 20251030
  Receipt Date: 20251119
  Transmission Date: 20260118
  Serious: Yes (Death, Other)
  Sender: BAYER HEALTHCARE PHARMACEUTICALS INC.
  Company Number: JP-BAYER-2025A143123

PATIENT
  Sex: Male

DRUGS (2)
  1. NUBEQA [Suspect]
     Active Substance: DAROLUTAMIDE
     Indication: Hormone-dependent prostate cancer
  2. DOCETAXEL [Concomitant]
     Active Substance: DOCETAXEL
     Indication: Hormone-dependent prostate cancer

REACTIONS (2)
  - Interstitial lung disease [Fatal]
  - Neutropenia [None]
